FAERS Safety Report 6788222-6 (Version None)
Quarter: 2010Q2

REPORT INFORMATION
  Report Type: 
  Country: None (occurrence: None)
  Receive Date: 20100623
  Receipt Date: 20080204
  Transmission Date: 20101027
  Serious: No
  Sender: FDA-Public Use
  Company Number: US-PFIZER INC-2008011223

PATIENT
  Sex: Male
  Weight: 77.7 kg

DRUGS (4)
  1. CADUET [Suspect]
     Dosage: 5MG/20MG
     Dates: start: 20070101, end: 20070101
  2. PLAVIX [Concomitant]
  3. CATAPRES [Concomitant]
     Indication: HYPERTENSION
     Route: 061
  4. ATENOLOL [Concomitant]
     Indication: HYPERTENSION

REACTIONS (1)
  - NIGHTMARE [None]
